FAERS Safety Report 5232552-6 (Version None)
Quarter: 2007Q1

REPORT INFORMATION
  Report Type: 
  Country: None (occurrence: None)
  Receive Date: 20070207
  Receipt Date: 20070202
  Transmission Date: 20070707
  Serious: Yes (Death)
  Sender: FDA-Public Use
  Company Number: JP-JPN-A200700312

PATIENT
  Age: 21 Day
  Sex: Male

DRUGS (5)
  1. FLOLAN [Suspect]
     Route: 042
     Dates: start: 20061006, end: 20061026
  2. UNKNOWN DRUG [Concomitant]
     Route: 065
  3. DOPAMIN [Concomitant]
     Route: 065
  4. VIAGRA [Concomitant]
     Route: 048
  5. UNKNOWN DRUG [Concomitant]
     Route: 065

REACTIONS (1)
  - PULMONARY HAEMORRHAGE [None]
